FAERS Safety Report 10425490 (Version 1)
Quarter: 2014Q3

REPORT INFORMATION
  Report Type: Spontaneous
  Country: GB (occurrence: GB)
  Receive Date: 20140902
  Receipt Date: 20140902
  Transmission Date: 20150326
  Serious: Yes (Other)
  Sender: FDA-Public Use
  Company Number: GB-009507513-1409GBR000824

PATIENT

DRUGS (3)
  1. ADCAL (CALCIUM CARBONATE) [Suspect]
     Active Substance: CALCIUM CARBONATE
  2. ALENDRONATE SODIUM. [Suspect]
     Active Substance: ALENDRONATE SODIUM
     Route: 048
  3. EXEMESTANE. [Suspect]
     Active Substance: EXEMESTANE

REACTIONS (3)
  - Blood glucose increased [Unknown]
  - Breast cancer [Unknown]
  - Cancer surgery [Unknown]
